FAERS Safety Report 11759869 (Version 1)
Quarter: 2015Q4

REPORT INFORMATION
  Report Type: Spontaneous
  Country: US (occurrence: US)
  Receive Date: 20151120
  Receipt Date: 20151120
  Transmission Date: 20160304
  Serious: No
  Sender: FDA-Public Use
  Company Number: US-JNJFOC-20150918595

PATIENT
  Age: 68 Year
  Sex: Female
  Weight: 49.9 kg

DRUGS (7)
  1. MENS ROGAINE EXTRA STRENGTH [Suspect]
     Active Substance: MINOXIDIL
     Indication: ALOPECIA
     Route: 061
     Dates: start: 20150827
  2. MENS ROGAINE EXTRA STRENGTH [Suspect]
     Active Substance: MINOXIDIL
     Route: 061
  3. VISCERALGINE [Concomitant]
     Indication: ARTHRITIS
     Dosage: AS NEEDED
     Route: 065
  4. BIOTIN [Concomitant]
     Active Substance: BIOTIN
     Indication: ROUTINE HEALTH MAINTENANCE
     Dosage: 5000 MG PER DAY
     Route: 065
  5. VISCERALGINE [Concomitant]
     Indication: PRURITUS
     Dosage: AS NEEDED
     Route: 065
  6. ZETIA [Concomitant]
     Active Substance: EZETIMIBE
     Indication: BLOOD CHOLESTEROL
     Dosage: 10 GM PER DAY, SINCE 2 MONTHS
     Route: 065
  7. ALL OTHER THERAPEUTIC PRODUCTS [Concomitant]
     Active Substance: UNSPECIFIED INGREDIENT
     Indication: MULTIPLE ALLERGIES
     Route: 055

REACTIONS (4)
  - Drug administered at inappropriate site [Not Recovered/Not Resolved]
  - Wrong patient received medication [Not Recovered/Not Resolved]
  - Alopecia [Not Recovered/Not Resolved]
  - Product use issue [Not Recovered/Not Resolved]

NARRATIVE: CASE EVENT DATE: 20150827
